FAERS Safety Report 10973098 (Version 1)
Quarter: 2015Q2

REPORT INFORMATION
  Report Type: Report from Study
  Country: US (occurrence: US)
  Receive Date: 20150401
  Receipt Date: 20150401
  Transmission Date: 20150821
  Serious: Yes (Hospitalization)
  Sender: FDA-Public Use
  Company Number: PHHO2015US004555

PATIENT
  Age: 52 Year
  Sex: Female
  Weight: 63 kg

DRUGS (4)
  1. MORPHINE [Suspect]
     Active Substance: MORPHINE
     Indication: PRODUCT USED FOR UNKNOWN INDICATION
     Dosage: 15 MG, UNK
     Route: 065
  2. ACETAMINOPHEN (PARACETAMOL), CODEINE PHOSPHATE [Suspect]
     Active Substance: ACETAMINOPHEN\CODEINE PHOSPHATE
     Indication: ANALGESIC THERAPY
     Dosage: UNK
     Route: 065
  3. CGS 20267 [Suspect]
     Active Substance: LETROZOLE
     Indication: MALIGNANT PERITONEAL NEOPLASM
     Dosage: 2.5 MG, QD
     Route: 048
     Dates: start: 20150116
  4. AFINITOR [Suspect]
     Active Substance: EVEROLIMUS
     Indication: MALIGNANT PERITONEAL NEOPLASM
     Dosage: 10 MG, QD
     Route: 048
     Dates: start: 20150116

REACTIONS (2)
  - Constipation [Recovered/Resolved]
  - Small intestinal obstruction [Recovered/Resolved]

NARRATIVE: CASE EVENT DATE: 20150311
